FAERS Safety Report 23874409 (Version 2)
Quarter: 2024Q3

REPORT INFORMATION
  Report Type: Report from Study
  Country: GB (occurrence: GB)
  Receive Date: 20240520
  Receipt Date: 20240729
  Transmission Date: 20241017
  Serious: Yes (Other)
  Sender: AKCEA THERAPEUTICS
  Company Number: GB-AKCEA THERAPEUTICS, INC.-2024IS004795

PATIENT

DRUGS (1)
  1. TEGSEDI [Suspect]
     Active Substance: INOTERSEN SODIUM
     Indication: Hereditary neuropathic amyloidosis
     Dosage: 284 MILLIGRAM
     Route: 058

REACTIONS (2)
  - Pulmonary embolism [Unknown]
  - Duodenal neoplasm [Unknown]
